FAERS Safety Report 22232208 (Version 1)
Quarter: 2023Q2

REPORT INFORMATION
  Report Type: Spontaneous
  Country: US (occurrence: None)
  Receive Date: 20230420
  Receipt Date: 20230420
  Transmission Date: 20230722
  Serious: No
  Sender: FDA-Public Use
  Company Number: US-ROCHE-3046102

PATIENT
  Age: 77 Year
  Sex: Female
  Weight: 51.756 kg

DRUGS (1)
  1. ESBRIET [Suspect]
     Active Substance: PIRFENIDONE
     Indication: Idiopathic pulmonary fibrosis
     Dosage: DOSE 267MG
     Route: 048
     Dates: start: 20210925

REACTIONS (3)
  - Haematochezia [Unknown]
  - Urine abnormality [Unknown]
  - Urinary tract infection [Recovered/Resolved]

NARRATIVE: CASE EVENT DATE: 20220302
